FAERS Safety Report 20685537 (Version 1)
Quarter: 2022Q2

REPORT INFORMATION
  Report Type: Spontaneous
  Country: US (occurrence: US)
  Receive Date: 20220407
  Receipt Date: 20220407
  Transmission Date: 20220721
  Serious: No
  Sender: FDA-Public Use
  Company Number: US-PFIZER INC-2021671077

PATIENT
  Age: 62 Year

DRUGS (2)
  1. SKELAXIN [Suspect]
     Active Substance: METAXALONE
     Dosage: UNK
  2. CELEBREX [Suspect]
     Active Substance: CELECOXIB
     Dosage: UNK

REACTIONS (2)
  - Frustration tolerance decreased [Unknown]
  - Pain [Unknown]
